FAERS Safety Report 25718612 (Version 1)
Quarter: 2025Q3

REPORT INFORMATION
  Report Type: Spontaneous
  Country: CN (occurrence: CN)
  Receive Date: 20250824
  Receipt Date: 20250824
  Transmission Date: 20251021
  Serious: Yes (Other)
  Sender: ALEXION PHARMACEUTICALS
  Company Number: CN-ASTRAZENECA-202508CHN014793CN

PATIENT
  Age: 61 Year
  Sex: Male
  Weight: 42.85 kg

DRUGS (2)
  1. DAPAGLIFLOZIN\METFORMIN HYDROCHLORIDE [Suspect]
     Active Substance: DAPAGLIFLOZIN\METFORMIN HYDROCHLORIDE
     Indication: Hyperglycaemia
     Dosage: 1 DOSAGE FORM, QD
     Dates: start: 20250815, end: 20250815
  2. LEVOFLOXACIN [Suspect]
     Active Substance: LEVOFLOXACIN
     Indication: Antiinflammatory therapy
     Dosage: 100 MILLILITER, QD
     Dates: start: 20250816, end: 20250816

REACTIONS (2)
  - Hepatic function abnormal [Recovering/Resolving]
  - Diarrhoea [Recovering/Resolving]

NARRATIVE: CASE EVENT DATE: 20250816
